FAERS Safety Report 9621219 (Version 1)
Quarter: 2013Q4

REPORT INFORMATION
  Report Type: Spontaneous
  Country: US (occurrence: None)
  Receive Date: 20131011
  Receipt Date: 20131011
  Transmission Date: 20140711
  Serious: Yes (Other)
  Sender: FDA-Public Use
  Company Number: None

PATIENT
  Age: 22 Year
  Sex: Male
  Weight: 95.26 kg

DRUGS (3)
  1. HALOPERIDOL DECANOATE [Suspect]
     Indication: SCHIZOPHRENIA, PARANOID TYPE
     Dosage: Q MONTHLY/8/16/10 2/5
     Route: 030
  2. OLANZAPINE [Concomitant]
  3. LITHIUM CARBONATE [Concomitant]

REACTIONS (1)
  - Hyperpyrexia [None]
